FAERS Safety Report 6738896-0 (Version None)
Quarter: 2010Q2

REPORT INFORMATION
  Report Type: 
  Country: None (occurrence: None)
  Receive Date: 20100521
  Receipt Date: 20100510
  Transmission Date: 20101027
  Serious: Yes (Life-Threatening, Hospitalization, Other)
  Sender: FDA-Public Use
  Company Number: 2010AL002802

PATIENT
  Sex: Male

DRUGS (14)
  1. IBUPROFEN [Suspect]
     Indication: PATENT DUCTUS ARTERIOSUS
     Dosage: 10 MG/KG; X1; IV
     Route: 042
     Dates: start: 20091126, end: 20091127
  2. BENZYLPENICILLIN [Concomitant]
  3. GENTAMICIN [Concomitant]
  4. METRONIDAZOLE [Concomitant]
  5. MEROPENEM [Concomitant]
  6. VANCOMYCIN [Concomitant]
  7. DOPAMINE HCL [Concomitant]
  8. INSULIN [Concomitant]
  9. SURVANTA [Concomitant]
  10. CAFFEINE [Concomitant]
  11. DOMPERIDONE [Concomitant]
  12. PHOSPHATE BUFFERED SALINE [Concomitant]
  13. CALCIFEROL [Concomitant]
  14. THICK + EASY [Concomitant]

REACTIONS (3)
  - ABDOMINAL DISTENSION [None]
  - ILEAL PERFORATION [None]
  - MALAISE [None]
